FAERS Safety Report 8298972-0 (Version None)
Quarter: 2012Q2

REPORT INFORMATION
  Report Type: 
  Country: None (occurrence: None)
  Receive Date: 20120419
  Receipt Date: 20120410
  Transmission Date: 20120825
  Serious: Yes (Hospitalization, Disabling, Other)
  Sender: FDA-Public Use
  Company Number: US-MERCK-1201USA02538

PATIENT
  Age: 66 Year
  Sex: Female
  Weight: 78 kg

DRUGS (4)
  1. FOSAMAX [Suspect]
     Indication: BONE DENSITY DECREASED
     Route: 048
     Dates: start: 20021001, end: 20051001
  2. FOSAMAX [Suspect]
     Route: 048
     Dates: start: 20060101, end: 20090101
  3. ALENDRONATE SODIUM [Suspect]
     Indication: BONE DENSITY DECREASED
     Route: 048
     Dates: start: 20081001, end: 20100301
  4. FOSAMAX [Suspect]
     Route: 048
     Dates: start: 20080826

REACTIONS (44)
  - DEVICE FAILURE [None]
  - TACHYCARDIA [None]
  - RENAL FAILURE ACUTE [None]
  - POSTOPERATIVE WOUND INFECTION [None]
  - HALLUCINATION [None]
  - HYPERSENSITIVITY [None]
  - TOOTH DISORDER [None]
  - GASTROOESOPHAGEAL REFLUX DISEASE [None]
  - WOUND INFECTION STAPHYLOCOCCAL [None]
  - VITAMIN B12 DEFICIENCY [None]
  - ARTHRALGIA [None]
  - NAIL DISORDER [None]
  - DRUG HYPERSENSITIVITY [None]
  - HYPOKALAEMIA [None]
  - WEIGHT DECREASED [None]
  - HAEMATOMA EVACUATION [None]
  - BLOOD CREATINE PHOSPHOKINASE MB INCREASED [None]
  - FALL [None]
  - NAUSEA [None]
  - DEPRESSION [None]
  - OSTEOPENIA [None]
  - HAEMATOMA [None]
  - FRACTURE NONUNION [None]
  - CLAUSTROPHOBIA [None]
  - IMPAIRED HEALING [None]
  - GAIT DISTURBANCE [None]
  - URINARY TRACT INFECTION [None]
  - ADVERSE EVENT [None]
  - RASH [None]
  - OVARIAN DISORDER [None]
  - OSTEOARTHRITIS [None]
  - ANXIETY [None]
  - BONE DENSITY DECREASED [None]
  - BONE DISORDER [None]
  - BREAST DISORDER [None]
  - INSOMNIA [None]
  - PANIC ATTACK [None]
  - CONSTIPATION [None]
  - FEMUR FRACTURE [None]
  - HAEMORRHAGIC ANAEMIA [None]
  - COAGULOPATHY [None]
  - PNEUMONIA [None]
  - PAIN IN EXTREMITY [None]
  - ENDOMETRIAL DISORDER [None]
